FAERS Safety Report 12285395 (Version 1)
Quarter: 2016Q2

REPORT INFORMATION
  Report Type: Spontaneous
  Country: US (occurrence: US)
  Receive Date: 20160420
  Receipt Date: 20160420
  Transmission Date: 20160815
  Serious: Yes (Other)
  Sender: FDA-Public Use
  Company Number: US-AUROBINDO-AUR-APL-2014-01369

PATIENT

DRUGS (1)
  1. MONTELUKAST [Suspect]
     Active Substance: MONTELUKAST SODIUM
     Indication: PRODUCT USED FOR UNKNOWN INDICATION
     Dosage: UNK UNK,UNK,,10 MG QPM
     Route: 048
     Dates: start: 20140129, end: 20140130

REACTIONS (3)
  - Feeling abnormal [Unknown]
  - Depression [Unknown]
  - Cold sweat [Unknown]

NARRATIVE: CASE EVENT DATE: 20140130
